FAERS Safety Report 5812185-0 (Version None)
Quarter: 2008Q3

REPORT INFORMATION
  Report Type: 
  Country: None (occurrence: None)
  Receive Date: 20080716
  Receipt Date: 20031014
  Transmission Date: 20090109
  Serious: Yes (Hospitalization)
  Sender: FDA-Public Use
  Company Number: US-BAXTER-2007BH010087

PATIENT
  Age: 35 Year
  Sex: Male

DRUGS (4)
  1. 0.9% SODIUM CHLORIDE IRRIGATION IN PLASTIC CONTAINER [Suspect]
     Indication: LIGAMENT RUPTURE
     Dosage: DOSE UNIT:UNKNOWN
     Route: 065
  2. MARCAINE                                /USA/ [Concomitant]
     Indication: DRUG USE FOR UNKNOWN INDICATION
     Dosage: DOSE UNIT:UNKNOWN
     Route: 065
  3. LACTATED RINGERS IRRIGATION IN PLASTIC CONTAINER [Concomitant]
     Indication: DRUG USE FOR UNKNOWN INDICATION
     Route: 065
  4. LACTATED RINGER'S [Concomitant]
     Indication: DRUG USE FOR UNKNOWN INDICATION
     Route: 065

REACTIONS (1)
  - BACTERIAL CULTURE POSITIVE [None]
